FAERS Safety Report 6196304-5 (Version None)
Quarter: 2009Q2

REPORT INFORMATION
  Report Type: 
  Country: None (occurrence: None)
  Receive Date: 20090520
  Receipt Date: 20090514
  Transmission Date: 20091009
  Serious: Yes (Other)
  Sender: FDA-Public Use
  Company Number: US-PFIZER INC-2005162609

PATIENT
  Sex: Female
  Weight: 74 kg

DRUGS (12)
  1. PROVERA [Suspect]
     Indication: HORMONE REPLACEMENT THERAPY
     Dosage: 2.5 MG, UNK
     Route: 048
     Dates: start: 19930301, end: 19980101
  2. MEDROXYPROGESTERONE AND MEDROXYPROGESTERONE ACETATE [Suspect]
     Indication: HORMONE REPLACEMENT THERAPY
     Dosage: UNK
     Dates: start: 19980421, end: 19980601
  3. PREMARIN [Suspect]
     Indication: HORMONE REPLACEMENT THERAPY
     Dosage: 0.625 MG, UNK
     Route: 065
     Dates: start: 19930301, end: 19931201
  4. PREMARIN [Suspect]
     Dosage: 0.9 MG, UNK
     Dates: start: 19960501, end: 19980101
  5. ESTRATEST [Suspect]
     Indication: HORMONE REPLACEMENT THERAPY
     Dosage: 1 MG, UNK
     Route: 065
     Dates: start: 19950501, end: 19960501
  6. ESTRACE [Suspect]
     Indication: HORMONE REPLACEMENT THERAPY
     Dosage: UNK
     Route: 065
     Dates: start: 19931201, end: 19950501
  7. LOESTRIN 1.5/30 [Suspect]
     Indication: HORMONE REPLACEMENT THERAPY
     Dosage: UNK
     Dates: start: 19920101, end: 19980101
  8. SYNTHROID [Concomitant]
     Indication: THYROID DISORDER
     Dosage: UNK
     Dates: start: 19760101
  9. THEOPHYLLINE [Concomitant]
     Indication: BRONCHITIS CHRONIC
     Dosage: UNK
     Dates: start: 19850101, end: 20050601
  10. GUAIFENESIN [Concomitant]
     Indication: ASTHMA
     Dosage: UNK
     Dates: start: 19850101
  11. SEREVENT [Concomitant]
     Indication: BRONCHITIS CHRONIC
     Dosage: UNK
     Dates: start: 19850101
  12. ATROVENT [Concomitant]
     Indication: BRONCHITIS CHRONIC
     Dosage: UNK
     Dates: start: 19850101

REACTIONS (1)
  - BREAST CANCER [None]
